FAERS Safety Report 5159185-4 (Version None)
Quarter: 2006Q4

REPORT INFORMATION
  Report Type: 
  Country: None (occurrence: None)
  Receive Date: 20061120
  Receipt Date: 20061031
  Transmission Date: 20070319
  Serious: No
  Sender: FDA-Public Use
  Company Number: 2006-149416-NL

PATIENT
  Age: 47 Year
  Sex: Female

DRUGS (2)
  1. MIRTAZAPINE [Suspect]
     Dates: start: 20060501
  2. VENLAFAXINE HCL [Concomitant]

REACTIONS (6)
  - HAEMOGLOBIN DECREASED [None]
  - MEAN CELL VOLUME DECREASED [None]
  - PLATELET COUNT INCREASED [None]
  - SELF INJURIOUS BEHAVIOUR [None]
  - SUICIDE ATTEMPT [None]
  - WEIGHT INCREASED [None]
